FAERS Safety Report 10543066 (Version 1)
Quarter: 2014Q4

REPORT INFORMATION
  Report Type: Spontaneous
  Country: US (occurrence: None)
  Receive Date: 20141023
  Receipt Date: 20141023
  Transmission Date: 20150529
  Serious: Yes (Life-Threatening)
  Sender: FDA-Public Use
  Company Number: 54973 AE 1568

PATIENT
  Age: 5 Month
  Sex: Female

DRUGS (5)
  1. BACTRIM [Concomitant]
     Active Substance: SULFAMETHOXAZOLE\TRIMETHOPRIM
  2. TYLENOL [Concomitant]
     Active Substance: ACETAMINOPHEN
  3. BABY TEETHING [Suspect]
     Active Substance: ARABICA COFFEE BEAN\ATROPA BELLADONNA\CALCIUM PHOSPHATE\CHAMOMILE
     Indication: TEETHING
     Dosage: 2 TABS, 2 X DAY,  2-3 DAYS
  4. ANTIBIOTICS [Concomitant]
     Active Substance: UNSPECIFIED INGREDIENT
  5. IV FLUIDS [Concomitant]
     Active Substance: UNSPECIFIED INGREDIENT

REACTIONS (11)
  - Seizure [None]
  - Hypopnoea [None]
  - Abnormal behaviour [None]
  - Urinary tract infection [None]
  - Pyrexia [None]
  - Altered state of consciousness [None]
  - Rash generalised [None]
  - Drug hypersensitivity [None]
  - Heart rate increased [None]
  - Drooling [None]
  - Viral infection [None]

NARRATIVE: CASE EVENT DATE: 20140901
